FAERS Safety Report 9229048 (Version 1)
Quarter: 2013Q2

REPORT INFORMATION
  Report Type: Spontaneous
  Country: US (occurrence: US)
  Receive Date: 20130412
  Receipt Date: 20130412
  Transmission Date: 20140414
  Serious: Yes (Disabling, Other)
  Sender: FDA-Public Use
  Company Number: CHPA2013US006175

PATIENT
  Age: 71 Year
  Sex: Female

DRUGS (1)
  1. DOAN^S PILLS STRENGTH UNKNOWN [Suspect]
     Indication: RHEUMATOID ARTHRITIS
     Dosage: 2 DF, PRN
     Route: 048

REACTIONS (4)
  - Rheumatoid arthritis [Not Recovered/Not Resolved]
  - Activities of daily living impaired [Not Recovered/Not Resolved]
  - Therapeutic response unexpected [Unknown]
  - Off label use [Unknown]
